FAERS Safety Report 25752791 (Version 3)
Quarter: 2025Q3

REPORT INFORMATION
  Report Type: Report from Study
  Country: US (occurrence: US)
  Receive Date: 20250902
  Receipt Date: 20250929
  Transmission Date: 20251020
  Serious: Yes (Hospitalization, Other)
  Sender: UCB
  Company Number: US-UCBSA-2025053467

PATIENT
  Sex: Male
  Weight: 165 kg

DRUGS (18)
  1. FINTEPLA [Suspect]
     Active Substance: FENFLURAMINE
     Indication: Lennox-Gastaut syndrome
     Dosage: 5.9 MILLILITER, 2X/DAY (BID)
     Route: 048
     Dates: start: 202502
  2. FINTEPLA [Suspect]
     Active Substance: FENFLURAMINE
     Route: 048
  3. FINTEPLA [Suspect]
     Active Substance: FENFLURAMINE
     Dosage: 5.9 MILLILITER, 2X/DAY (BID)
     Route: 048
     Dates: start: 20250312
  4. BRIVIACT [Concomitant]
     Active Substance: BRIVARACETAM
     Indication: Seizure
     Dosage: 50 MILLIGRAM, 2X/DAY (BID)
     Route: 048
  5. FYCOMPA [Concomitant]
     Active Substance: PERAMPANEL
     Indication: Seizure
     Dosage: 4 MILLIGRAM, ONCE DAILY (QD)
     Route: 048
  6. TRILEPTAL [Concomitant]
     Active Substance: OXCARBAZEPINE
     Indication: Seizure
     Dosage: 1200 MILLIGRAM, 2X/DAY (BID)
  7. TOPAMAX [Concomitant]
     Active Substance: TOPIRAMATE
     Indication: Seizure
     Dosage: 400 MILLIGRAM, 2X/DAY (BID)
  8. EPIDIOLEX [Concomitant]
     Active Substance: CANNABIDIOL
     Indication: Seizure
     Dosage: 8 MILLILITER, 2X/DAY (BID)
     Route: 048
  9. ALBUTEROL SULFATE [Concomitant]
     Active Substance: ALBUTEROL SULFATE
     Indication: Product used for unknown indication
  10. APIXABAN [Concomitant]
     Active Substance: APIXABAN
     Indication: Product used for unknown indication
     Dosage: 5 MILLIGRAM, 2X/DAY (BID)
     Route: 048
  11. CLONAZEPAM [Concomitant]
     Active Substance: CLONAZEPAM
     Indication: Product used for unknown indication
     Dosage: 1 MILLIGRAM, 2X/DAY (BID)
     Route: 048
  12. LEVOTHYROXINE [Concomitant]
     Active Substance: LEVOTHYROXINE
     Indication: Product used for unknown indication
     Dosage: 75 MICROGRAM, ONCE DAILY (QD)
     Route: 048
  13. OLANZAPINE [Concomitant]
     Active Substance: OLANZAPINE
     Indication: Product used for unknown indication
     Dosage: 5 MILLIGRAM, ONCE DAILY (QD)
     Route: 048
  14. OXCARBAZEPINE [Concomitant]
     Active Substance: OXCARBAZEPINE
     Indication: Product used for unknown indication
     Dosage: 600 MILLIGRAM, 2X/DAY (BID)
     Route: 048
  15. PEPCID [Concomitant]
     Active Substance: FAMOTIDINE
     Indication: Product used for unknown indication
     Dosage: 20 MILLIGRAM, 2X/DAY (BID)
     Route: 048
  16. PRUCALOPRIDE [Concomitant]
     Active Substance: PRUCALOPRIDE
     Indication: Product used for unknown indication
     Dosage: 2 MILLIGRAM, 2X/DAY (BID)
     Route: 048
  17. SODIUM CHLORIDE [Concomitant]
     Active Substance: SODIUM CHLORIDE
     Indication: Product used for unknown indication
     Dosage: 1 GRAM, 2X/DAY (BID)
     Route: 048
  18. TOPIRAMATE [Concomitant]
     Active Substance: TOPIRAMATE
     Indication: Product used for unknown indication
     Dosage: 200 MILLIGRAM, 2X/DAY (BID)
     Route: 048

REACTIONS (6)
  - Tricuspid valve incompetence [Not Recovered/Not Resolved]
  - Respiratory tract infection [Unknown]
  - Pulmonary valve incompetence [Unknown]
  - Aortic valve incompetence [Unknown]
  - Echocardiogram abnormal [Unknown]
  - COVID-19 [Recovered/Resolved]

NARRATIVE: CASE EVENT DATE: 20250101
